FAERS Safety Report 5238426-9 (Version None)
Quarter: 2007Q1

REPORT INFORMATION
  Report Type: 
  Country: None (occurrence: None)
  Receive Date: 20070215
  Receipt Date: 20060717
  Transmission Date: 20070707
  Serious: Yes (Other)
  Sender: FDA-Public Use
  Company Number: 2006UW14560

PATIENT
  Age: 78 Year
  Sex: Female
  Weight: 96.6 kg

DRUGS (9)
  1. ARIMIDEX [Suspect]
     Indication: BREAST CANCER FEMALE
     Route: 048
     Dates: start: 20060125
  2. SYNTHROID [Concomitant]
  3. COUMADIN [Concomitant]
  4. LIPITOR [Concomitant]
     Route: 048
     Dates: start: 20060407, end: 20060619
  5. ZETIA [Concomitant]
     Dates: start: 20060711
  6. CITRACAL [Concomitant]
     Route: 048
  7. VITAMIN E [Concomitant]
  8. PROTEGRA ANTIOXIDANT [Concomitant]
  9. CO-Q10 [Concomitant]

REACTIONS (25)
  - ABDOMINAL PAIN [None]
  - ARTHRALGIA [None]
  - BACK PAIN [None]
  - BLISTER [None]
  - COUGH [None]
  - DRY MOUTH [None]
  - ENURESIS [None]
  - FATIGUE [None]
  - FORMICATION [None]
  - GAIT DISTURBANCE [None]
  - GINGIVAL DISORDER [None]
  - GINGIVAL SWELLING [None]
  - INSOMNIA [None]
  - JOINT STIFFNESS [None]
  - MUSCLE SPASMS [None]
  - MUSCLE TWITCHING [None]
  - NAUSEA [None]
  - ORAL MUCOSAL EXFOLIATION [None]
  - ORAL PAIN [None]
  - PEMPHIGOID [None]
  - PHARYNGOLARYNGEAL PAIN [None]
  - RASH [None]
  - RESTLESS LEGS SYNDROME [None]
  - STOMATITIS [None]
  - TRACHEAL PAIN [None]
